FAERS Safety Report 10161255 (Version 1)
Quarter: 2014Q2

REPORT INFORMATION
  Report Type: Spontaneous
  Country: US (occurrence: US)
  Receive Date: 20140508
  Receipt Date: 20140508
  Transmission Date: 20141212
  Serious: Yes (Death)
  Sender: FDA-Public Use
  Company Number: US-ROCHE-1398278

PATIENT
  Age: 70 Year
  Sex: Male

DRUGS (5)
  1. XELODA [Suspect]
     Indication: OESOPHAGEAL CARCINOMA
     Route: 048
     Dates: start: 20130516
  2. HERCEPTIN [Concomitant]
     Route: 065
  3. AMBIEN [Concomitant]
  4. GABAPENTIN [Concomitant]
  5. OMEPRAZOLE [Concomitant]

REACTIONS (1)
  - Death [Fatal]
